FAERS Safety Report 16403510 (Version 1)
Quarter: 2019Q2

REPORT INFORMATION
  Report Type: Spontaneous
  Country: US (occurrence: US)
  Receive Date: 20190607
  Receipt Date: 20190607
  Transmission Date: 20190711
  Serious: No
  Sender: FDA-Public Use
  Company Number: US-BIOGEN-2018BI00668306

PATIENT
  Sex: Female

DRUGS (1)
  1. TYSABRI [Suspect]
     Active Substance: NATALIZUMAB
     Indication: MULTIPLE SCLEROSIS
     Route: 050
     Dates: start: 20170607

REACTIONS (5)
  - Somnolence [Unknown]
  - Abdominal discomfort [Unknown]
  - Multiple allergies [Unknown]
  - Vomiting [Unknown]
  - Retching [Unknown]
